FAERS Safety Report 9346154 (Version 1)
Quarter: 2013Q2

REPORT INFORMATION
  Report Type: Spontaneous
  Country: JP (occurrence: JP)
  Receive Date: 20130613
  Receipt Date: 20130613
  Transmission Date: 20140414
  Serious: Yes (Death, Other)
  Sender: FDA-Public Use
  Company Number: JP-OTSUKA-JP-2013-12173

PATIENT
  Age: 60 Year
  Sex: Female

DRUGS (6)
  1. BUSULFEX [Suspect]
     Indication: TRANSPLANT REJECTION
     Dosage: 4 MG/KG, DAILY DOSE
     Route: 041
  2. FLUDARABINE [Concomitant]
     Indication: TRANSPLANT REJECTION
     Route: 065
  3. PREDNISOLONE [Concomitant]
     Indication: PYREXIA
     Route: 065
  4. ACICLOVIR [Concomitant]
     Route: 065
  5. FOSCARNET [Concomitant]
     Indication: CYTOMEGALOVIRUS VIRAEMIA
     Route: 041
  6. GANCICLOVIR [Concomitant]
     Indication: CYTOMEGALOVIRUS VIRAEMIA
     Route: 065

REACTIONS (6)
  - Depressed level of consciousness [Unknown]
  - Polyuria [Unknown]
  - Cystitis haemorrhagic [Unknown]
  - Blood bilirubin unconjugated increased [Unknown]
  - Pruritus [Unknown]
  - Hypernatraemia [Unknown]
